FAERS Safety Report 9313619 (Version 1)
Quarter: 2013Q2

REPORT INFORMATION
  Report Type: Spontaneous
  Country: CN (occurrence: CN)
  Receive Date: 20130528
  Receipt Date: 20130528
  Transmission Date: 20140414
  Serious: Yes (Other)
  Sender: FDA-Public Use
  Company Number: CN-ELI_LILLY_AND_COMPANY-CN201210007259

PATIENT
  Age: 67 Year
  Sex: Female
  Weight: 52 kg

DRUGS (2)
  1. CECLOR [Suspect]
     Indication: INFECTION
     Dosage: 125 MG, TID
     Route: 048
     Dates: start: 20110304, end: 20110304
  2. EUTHYROX [Concomitant]

REACTIONS (1)
  - Loss of consciousness [Recovered/Resolved]
